FAERS Safety Report 8428825-6 (Version None)
Quarter: 2012Q2

REPORT INFORMATION
  Report Type: 
  Country: None (occurrence: None)
  Receive Date: 20120604
  Receipt Date: 20120511
  Transmission Date: 20120825
  Serious: Yes (Other)
  Sender: FDA-Public Use
  Company Number: USW201206-000097

PATIENT
  Age: 68 Year
  Sex: Male

DRUGS (10)
  1. ASPIRIN [Concomitant]
  2. IMMODIUM (LOPERAMIDE) [Concomitant]
  3. CITALOPRAM HYDROBROMIDE [Concomitant]
  4. APOKYN [Suspect]
     Indication: PARKINSON'S DISEASE
     Dosage: 6;3.5 MG 12 HOURS/DAY TITRATED UP FROM 1 MG, SUBCUTANEOUS
     Route: 058
     Dates: start: 20120101, end: 20120519
  5. QUETIAPINE FUMARATE [Concomitant]
  6. NYTOL (DIPHENHYDRAMINE HYDROCHLORIDE) [Concomitant]
  7. CARVEDILOL [Concomitant]
  8. ROSUVASTATIN [Concomitant]
  9. DOMPERIDONE (DOMPERIDONE) [Concomitant]
  10. RAMIPRIL [Concomitant]

REACTIONS (14)
  - PARANOIA [None]
  - HYPERSOMNIA [None]
  - ATRIAL FIBRILLATION [None]
  - ANXIETY [None]
  - VISION BLURRED [None]
  - CONDITION AGGRAVATED [None]
  - OEDEMA PERIPHERAL [None]
  - SECRETION DISCHARGE [None]
  - SKIN LESION [None]
  - RIGHT VENTRICULAR FAILURE [None]
  - HALLUCINATION [None]
  - NAUSEA [None]
  - MYOCARDIAL ISCHAEMIA [None]
  - DIARRHOEA [None]
